FAERS Safety Report 12502092 (Version 3)
Quarter: 2016Q3

REPORT INFORMATION
  Report Type: Spontaneous
  Country: IT (occurrence: IT)
  Receive Date: 20160627
  Receipt Date: 20160712
  Transmission Date: 20161109
  Serious: No
  Sender: FDA-Public Use
  Company Number: IT-SA-2016SA113485

PATIENT
  Sex: Male

DRUGS (11)
  1. SOLOSTAR [Suspect]
     Active Substance: DEVICE
     Indication: DIABETES MELLITUS
  2. CARDICOR [Concomitant]
     Active Substance: BISOPROLOL
     Dosage: MORNING
  3. CARDIOASPIRINA [Concomitant]
     Active Substance: ASPIRIN
     Dosage: LUNCH
  4. FERROUS SULFATE. [Concomitant]
     Active Substance: FERROUS SULFATE
     Dosage: LUNCH
  5. PLAVIX [Concomitant]
     Active Substance: CLOPIDOGREL BISULFATE
     Dosage: EVENING
  6. LASIX [Concomitant]
     Active Substance: FUROSEMIDE
     Dosage: MORNING-LUNCH
  7. LUVION [Concomitant]
     Active Substance: CANRENONE
  8. ANTRA [Concomitant]
     Active Substance: OMEPRAZOLE
     Dosage: MORNING
  9. DELTACORTENE [Concomitant]
     Active Substance: PREDNISONE
     Dosage: MORNING
  10. APIDRA SOLOSTAR [Suspect]
     Active Substance: INSULIN GLULISINE
     Indication: DIABETES MELLITUS
     Dosage: 6-10-8 IU
     Route: 058
  11. FOLINA [Concomitant]
     Active Substance: FOLIC ACID

REACTIONS (4)
  - Pain in extremity [Recovering/Resolving]
  - Hyperglycaemia [Recovered/Resolved]
  - Device issue [Unknown]
  - Muscular weakness [Recovering/Resolving]

NARRATIVE: CASE EVENT DATE: 20160614
